FAERS Safety Report 6458815-4 (Version None)
Quarter: 2009Q4

REPORT INFORMATION
  Report Type: 
  Country: None (occurrence: None)
  Receive Date: 20091127
  Receipt Date: 20091123
  Transmission Date: 20100525
  Serious: Yes (Hospitalization)
  Sender: FDA-Public Use
  Company Number: FR-ROCHE-670697

PATIENT
  Sex: Male

DRUGS (2)
  1. ROCEPHIN [Suspect]
     Route: 030
     Dates: start: 20090620, end: 20090630
  2. COZAAR [Concomitant]
     Dosage: DRUG REPORTED: COZAAR 100 MG TABLET; DOSE NOT CHANGED
     Route: 048

REACTIONS (1)
  - ERYTHEMA NODOSUM [None]
